FAERS Safety Report 7149704-0 (Version None)
Quarter: 2010Q4

REPORT INFORMATION
  Report Type: 
  Country: None (occurrence: None)
  Receive Date: 20101210
  Receipt Date: 20101202
  Transmission Date: 20110411
  Serious: Yes (Hospitalization)
  Sender: FDA-Public Use
  Company Number: US-BIOGENIDEC-2010BI032728

PATIENT
  Sex: Female

DRUGS (1)
  1. TYSABRI [Suspect]
     Indication: MULTIPLE SCLEROSIS
     Route: 042
     Dates: start: 20100514, end: 20100706

REACTIONS (6)
  - BLOOD SODIUM DECREASED [None]
  - FALL [None]
  - FRACTURED COCCYX [None]
  - ILL-DEFINED DISORDER [None]
  - NERVE INJURY [None]
  - URINARY TRACT INFECTION [None]
